FAERS Safety Report 22662821 (Version 3)
Quarter: 2025Q2

REPORT INFORMATION
  Report Type: Spontaneous
  Country: FI (occurrence: FI)
  Receive Date: 20230702
  Receipt Date: 20250430
  Transmission Date: 20250716
  Serious: Yes (Death)
  Sender: AMGEN
  Company Number: FI-AMGEN-FINSP2023112823

PATIENT
  Sex: Female

DRUGS (1)
  1. ARANESP [Suspect]
     Active Substance: DARBEPOETIN ALFA
     Indication: Product used for unknown indication
     Route: 065

REACTIONS (1)
  - Death [Fatal]
